FAERS Safety Report 11357970 (Version 1)
Quarter: 2015Q3

REPORT INFORMATION
  Report Type: Spontaneous
  Country: US (occurrence: US)
  Receive Date: 20150803
  Receipt Date: 20150803
  Transmission Date: 20151125
  Serious: No
  Sender: FDA-Public Use
  Company Number: US-ELI_LILLY_AND_COMPANY-US200909005250

PATIENT
  Sex: Male

DRUGS (3)
  1. CLONIDINE. [Concomitant]
     Active Substance: CLONIDINE
  2. STRATTERA [Suspect]
     Active Substance: ATOMOXETINE HYDROCHLORIDE
  3. MELATONIN [Concomitant]
     Active Substance: MELATONIN

REACTIONS (2)
  - Aggression [Unknown]
  - Oppositional defiant disorder [Unknown]
